FAERS Safety Report 6929841-3 (Version None)
Quarter: 2010Q3

REPORT INFORMATION
  Report Type: 
  Country: None (occurrence: None)
  Receive Date: 20100818
  Receipt Date: 20100811
  Transmission Date: 20110219
  Serious: Yes (Life-Threatening, Hospitalization)
  Sender: FDA-Public Use
  Company Number: DE-SANOFI-AVENTIS-2010SA047791

PATIENT
  Age: 39 Year
  Sex: Male

DRUGS (11)
  1. OXALIPLATIN [Suspect]
     Route: 041
     Dates: start: 20100201, end: 20100201
  2. DOCETAXEL [Suspect]
     Route: 041
     Dates: start: 20100201, end: 20100201
  3. FLUOROURACIL [Suspect]
     Route: 041
     Dates: start: 20100201, end: 20100201
  4. FOLINIC ACID [Suspect]
     Route: 041
     Dates: start: 20100201, end: 20100201
  5. CALCIUM GLUCONATE [Concomitant]
     Indication: PREMEDICATION
     Dosage: BEFORE AND AFTER INFUSION OF OXALIPLATIN
     Dates: start: 20100201, end: 20100201
  6. MAGNESIUM SULFATE [Concomitant]
     Indication: PREMEDICATION
     Dosage: BEFORE AND AFTER INFUSION OF OXALIPLATIN
     Dates: start: 20100201, end: 20100201
  7. DEXAMETHASONE [Concomitant]
     Indication: PRODUCT USED FOR UNKNOWN INDICATION
  8. KEVATRIL [Concomitant]
     Indication: PRODUCT USED FOR UNKNOWN INDICATION
  9. CLEMASTINE FUMARATE [Concomitant]
     Indication: PRODUCT USED FOR UNKNOWN INDICATION
  10. RANITIC [Concomitant]
     Indication: PRODUCT USED FOR UNKNOWN INDICATION
  11. EMEND [Concomitant]
     Indication: PRODUCT USED FOR UNKNOWN INDICATION
     Route: 042

REACTIONS (7)
  - CACHEXIA [None]
  - CHOLECYSTITIS [None]
  - DEHYDRATION [None]
  - DIARRHOEA [None]
  - FISTULA [None]
  - PNEUMONIA [None]
  - PYOTHORAX [None]
